FAERS Safety Report 18513755 (Version 1)
Quarter: 2020Q4

REPORT INFORMATION
  Report Type: Spontaneous
  Country: US (occurrence: US)
  Receive Date: 20201118
  Receipt Date: 20201118
  Transmission Date: 20210114
  Serious: Yes (Other)
  Sender: FDA-Public Use
  Company Number: US-CIPLA LTD.-2020US08652

PATIENT

DRUGS (2)
  1. GEMCITABINE. [Suspect]
     Active Substance: GEMCITABINE
     Indication: FOLLICULAR DENDRITIC CELL SARCOMA
     Dosage: UNK
     Route: 042
  2. PREDNISONE. [Concomitant]
     Active Substance: PREDNISONE
     Indication: FOLLICULAR DENDRITIC CELL SARCOMA
     Dosage: UNK
     Route: 065

REACTIONS (2)
  - Paraneoplastic pemphigus [Unknown]
  - Corneal perforation [Recovered/Resolved]
